FAERS Safety Report 23695639 (Version 2)
Quarter: 2024Q3

REPORT INFORMATION
  Report Type: Spontaneous
  Country: IR (occurrence: IR)
  Receive Date: 20240402
  Receipt Date: 20240816
  Transmission Date: 20241017
  Serious: Yes (Hospitalization)
  Sender: IPCA
  Company Number: IR-IPCA LABORATORIES LIMITED-IPC-2024-IR-000833

PATIENT

DRUGS (4)
  1. WARFARIN SODIUM [Suspect]
     Active Substance: WARFARIN SODIUM
     Indication: Atrial fibrillation
     Dosage: 12 DOSAGE FORM, QD (60 MILLIGRAM)
     Route: 065
  2. WARFARIN SODIUM [Suspect]
     Active Substance: WARFARIN SODIUM
     Dosage: 20 DOSAGE FORM, QD (100 MILLIGRAM)
     Route: 065
  3. WARFARIN SODIUM [Suspect]
     Active Substance: WARFARIN SODIUM
     Dosage: 24 DOSAGE FORM, QD (120 MILLIGRAM/DAY)
     Route: 065
  4. LRVOTHYROXINE [Concomitant]
     Indication: Hypothyroidism
     Dosage: 100 MICROGRAM, QD
     Route: 065

REACTIONS (4)
  - International normalised ratio decreased [Recovered/Resolved]
  - Contusion [Unknown]
  - Drug resistance [Unknown]
  - Drug ineffective [Unknown]
